FAERS Safety Report 5227747-1 (Version None)
Quarter: 2007Q1

REPORT INFORMATION
  Report Type: 
  Country: None (occurrence: None)
  Receive Date: 20070202
  Receipt Date: 20070125
  Transmission Date: 20070707
  Serious: Yes (Hospitalization)
  Sender: FDA-Public Use
  Company Number: US-MERCK-0701USA04570

PATIENT
  Age: 76 Year
  Sex: Female

DRUGS (1)
  1. COZAAR [Suspect]
     Route: 048
     Dates: start: 19980101, end: 20020101

REACTIONS (2)
  - ATRIAL FIBRILLATION [None]
  - PARAESTHESIA ORAL [None]
